FAERS Safety Report 22794216 (Version 3)
Quarter: 2023Q4

REPORT INFORMATION
  Report Type: Spontaneous
  Country: None (occurrence: US)
  Receive Date: 20230807
  Receipt Date: 20231207
  Transmission Date: 20240109
  Serious: Yes (Hospitalization, Other)
  Sender: FDA-Public Use
  Company Number: US-Amphastar Pharmaceuticals, Inc.-2144481

PATIENT
  Age: 23 Year
  Sex: Female
  Weight: 86.364 kg

DRUGS (9)
  1. ENOXAPARIN SODIUM [Suspect]
     Active Substance: ENOXAPARIN SODIUM
     Indication: Thrombosis prophylaxis
     Route: 058
  2. DEVICE [Suspect]
     Active Substance: DEVICE
  3. DEVICE [Suspect]
     Active Substance: DEVICE
  4. DEVICE [Suspect]
     Active Substance: DEVICE
  5. OXCARBAZEPINE [Concomitant]
     Active Substance: OXCARBAZEPINE
  6. ATIVAN [Concomitant]
     Active Substance: LORAZEPAM
  7. LITHIUM [Concomitant]
     Active Substance: LITHIUM
  8. PHENYTOIN [Concomitant]
     Active Substance: PHENYTOIN
  9. OLANZAPINE [Concomitant]
     Active Substance: OLANZAPINE

REACTIONS (4)
  - Foreign body in skin or subcutaneous tissue [Recovered/Resolved]
  - Removal of foreign body [Recovered/Resolved]
  - Hospitalisation [Recovered/Resolved]
  - Foreign body in skin or subcutaneous tissue [Unknown]

NARRATIVE: CASE EVENT DATE: 20230501
